FAERS Safety Report 8042977-1 (Version None)
Quarter: 2012Q1

REPORT INFORMATION
  Report Type: 
  Country: None (occurrence: None)
  Receive Date: 20120112
  Receipt Date: 20120104
  Transmission Date: 20120608
  Serious: Yes (Hospitalization, Disabling, Other)
  Sender: FDA-Public Use
  Company Number: PHHY2011DE92230

PATIENT
  Sex: Female

DRUGS (7)
  1. TORSEMIDE [Concomitant]
     Indication: OEDEMA
     Dosage: 10 MG
     Route: 048
  2. ACTRAPHANE HM [Concomitant]
     Indication: DIABETES MELLITUS
     Dosage: UNK UKN, UNK
     Route: 058
  3. PANTOPRAZOLE [Concomitant]
     Indication: PROPHYLAXIS
     Dosage: 40 MG
     Route: 048
  4. TORSEMIDE [Concomitant]
     Indication: HYPERTENSION
  5. TASIGNA [Suspect]
     Indication: CHRONIC MYELOID LEUKAEMIA
     Dosage: 400 MG, DAILY
     Route: 048
     Dates: start: 20101213, end: 20111210
  6. LEVOTHYROXINE SODIUM [Concomitant]
     Indication: HYPOTHYROIDISM
     Dosage: 25 UG
     Route: 048
  7. RAMIPRIL [Concomitant]
     Indication: HYPERTENSION
     Dosage: 2.5 MG, QD

REACTIONS (5)
  - DIZZINESS [None]
  - JAUNDICE [None]
  - NAUSEA [None]
  - ANAEMIA [None]
  - GASTROINTESTINAL HAEMORRHAGE [None]
